FAERS Safety Report 4454711-2 (Version None)
Quarter: 2004Q3

REPORT INFORMATION
  Report Type: 
  Country: None (occurrence: None)
  Receive Date: 20040920
  Receipt Date: 20040920
  Transmission Date: 20050211
  Serious: Yes (Hospitalization)
  Sender: FDA-Public Use
  Company Number: None

PATIENT
  Age: 77 Year
  Sex: Male
  Weight: 72 kg

DRUGS (2)
  1. FENTANYL [Suspect]
     Indication: POSTOPERATIVE ANALGESIA
     Dosage: 10 ML HOUR EPIDURAL
     Route: 008
     Dates: start: 20040626, end: 20040627
  2. BUPIVACAINE [Suspect]
     Dosage: 10 ML HOUR EPIDURAL
     Route: 008
     Dates: start: 20040626, end: 20040627

REACTIONS (3)
  - ANAESTHETIC COMPLICATION [None]
  - BLOOD PRESSURE DECREASED [None]
  - PARESIS [None]
